FAERS Safety Report 15966072 (Version 2)
Quarter: 2021Q3

REPORT INFORMATION
  Report Type: Spontaneous
  Country: DE (occurrence: DE)
  Receive Date: 20190215
  Receipt Date: 20210714
  Transmission Date: 20211014
  Serious: Yes (Life-Threatening, Hospitalization, Other)
  Sender: FDA-Public Use
  Company Number: DE-AUROBINDO-AUR-APL-2019-008330

PATIENT
  Age: 66 Year
  Sex: Male

DRUGS (26)
  1. PREDNISOLONE. [Suspect]
     Active Substance: PREDNISOLONE
     Dosage: UNK, ONCE A DAY
     Route: 065
  2. SULFAMETHOXAZOLE;TRIMETHOPRIM [Suspect]
     Active Substance: SULFAMETHOXAZOLE\TRIMETHOPRIM
     Indication: INFECTION
     Dosage: UNK
     Route: 065
     Dates: start: 201208, end: 201209
  3. ISONIAZID. [Concomitant]
     Active Substance: ISONIAZID
     Indication: ANTIBIOTIC PROPHYLAXIS
     Dosage: UNK
     Route: 065
  4. ISONIAZID. [Concomitant]
     Active Substance: ISONIAZID
     Indication: ANTIBIOTIC PROPHYLAXIS
  5. ACETYLSALICYLIC ACID [Concomitant]
     Active Substance: ASPIRIN
     Indication: PRODUCT USED FOR UNKNOWN INDICATION
     Dosage: UNK
     Route: 065
  6. PREDNISOLONE. [Suspect]
     Active Substance: PREDNISOLONE
     Indication: PROPHYLAXIS AGAINST TRANSPLANT REJECTION
     Dosage: 20 MILLIGRAM
     Route: 048
     Dates: start: 201208
  7. PREDNISOLONE. [Suspect]
     Active Substance: PREDNISOLONE
     Dosage: UNK
     Route: 065
     Dates: start: 201210
  8. PENTAMIDINE [Concomitant]
     Active Substance: PENTAMIDINE
     Indication: ANTIFUNGAL PROPHYLAXIS
     Dosage: UNK
     Route: 045
     Dates: start: 201209
  9. TACROLIMUS. [Suspect]
     Active Substance: TACROLIMUS
     Dosage: 5.5 MILLIGRAM
     Route: 065
     Dates: start: 201210
  10. MYCOPHENOLATE MOFETIL. [Suspect]
     Active Substance: MYCOPHENOLATE MOFETIL
     Indication: RENAL TRANSPLANT
     Dosage: 1000 MILLIGRAM
     Route: 065
     Dates: start: 201210
  11. ACICLOVIR [Concomitant]
     Active Substance: ACYCLOVIR
     Indication: PRODUCT USED FOR UNKNOWN INDICATION
     Dosage: UNK, ACICLOVIR AT A PROPHYLACTIC DOSAGE
     Route: 061
  12. METAMIZOLE [Concomitant]
     Active Substance: METAMIZOLE
     Indication: PRODUCT USED FOR UNKNOWN INDICATION
     Dosage: UNK
     Route: 048
  13. TORASEMIDE [Concomitant]
     Active Substance: TORSEMIDE
     Indication: PRODUCT USED FOR UNKNOWN INDICATION
     Dosage: 40 MILLIGRAM
     Route: 065
  14. THYMOGLOBULIN [Concomitant]
     Active Substance: LAPINE T-LYMPHOCYTE IMMUNE GLOBULIN
     Indication: RENAL TRANSPLANT
     Dosage: UNK
     Route: 065
  15. VALGANCICLOVIR. [Suspect]
     Active Substance: VALGANCICLOVIR
     Indication: ANTIBIOTIC THERAPY
     Dosage: UNK
     Route: 048
  16. PREDNISOLONE. [Suspect]
     Active Substance: PREDNISOLONE
     Dosage: UNK, ONCE A DAY
     Route: 065
     Dates: start: 201209
  17. PREDNISOLONE. [Suspect]
     Active Substance: PREDNISOLONE
     Dosage: 15 MILLIGRAM
     Route: 065
  18. MYCOPHENOLATE MOFETIL. [Suspect]
     Active Substance: MYCOPHENOLATE MOFETIL
     Indication: PROPHYLAXIS AGAINST TRANSPLANT REJECTION
     Dosage: 1500 MILLIGRAM, ONCE A DAY (500 MG 3 TIMES/DAY)
     Route: 065
     Dates: start: 201208, end: 201210
  19. TACROLIMUS. [Suspect]
     Active Substance: TACROLIMUS
     Indication: PROPHYLAXIS AGAINST TRANSPLANT REJECTION
     Dosage: 7.5 MILLIGRAM, ONCE A DAY
     Route: 065
     Dates: start: 201208
  20. CIPROFLOXACIN. [Concomitant]
     Active Substance: CIPROFLOXACIN
     Indication: PRODUCT USED FOR UNKNOWN INDICATION
     Dosage: UNK
     Route: 065
  21. TACROLIMUS. [Suspect]
     Active Substance: TACROLIMUS
     Indication: IMMUNOSUPPRESSION
     Dosage: UNK, ONCE A DAY
     Route: 065
     Dates: start: 201209
  22. TACROLIMUS. [Suspect]
     Active Substance: TACROLIMUS
     Dosage: UNK, TWO TIMES A DAY
     Route: 065
     Dates: start: 201209
  23. PREDNISOLONE. [Suspect]
     Active Substance: PREDNISOLONE
     Dosage: 10 MILLIGRAM, DAILY
     Route: 065
     Dates: start: 201209
  24. SULFAMETHOXAZOLE;TRIMETHOPRIM [Suspect]
     Active Substance: SULFAMETHOXAZOLE\TRIMETHOPRIM
     Indication: ANTIBIOTIC THERAPY
     Dosage: 1920 MILLIGRAM, ONCE A DAY
     Route: 048
     Dates: start: 20130402, end: 20130404
  25. PENTACARINAT [Concomitant]
     Active Substance: PENTAMIDINE ISETHIONATE
     Indication: PRODUCT USED FOR UNKNOWN INDICATION
     Dosage: UNK
     Route: 065
  26. TACROLIMUS. [Suspect]
     Active Substance: TACROLIMUS
     Dosage: 7 MILLIGRAM
     Route: 065

REACTIONS (35)
  - Urinary tract infection [Unknown]
  - Tachycardia [Unknown]
  - Nocardiosis [Recovered/Resolved]
  - Acute kidney injury [Recovering/Resolving]
  - Hyponatraemia [Recovered/Resolved]
  - Productive cough [Unknown]
  - Candida infection [Unknown]
  - Hypoacusis [Unknown]
  - Drug level fluctuating [Unknown]
  - Hyperkalaemia [Unknown]
  - Delayed graft function [Unknown]
  - Transplant failure [Recovered/Resolved]
  - Subcutaneous abscess [Unknown]
  - Complications of transplanted kidney [Recovered/Resolved]
  - Cardiac failure [Unknown]
  - Renal transplant failure [Recovered/Resolved]
  - Cytomegalovirus viraemia [Unknown]
  - Hyperacusis [Unknown]
  - Ventricular tachycardia [Unknown]
  - Herpes simplex [Unknown]
  - Lymphocele [Unknown]
  - Arthralgia [Recovered/Resolved]
  - Mycobacterium fortuitum infection [Unknown]
  - Pleural effusion [Unknown]
  - Central nervous system lesion [Unknown]
  - Urogenital infection bacterial [Unknown]
  - Ventricular extrasystoles [Unknown]
  - Inappropriate antidiuretic hormone secretion [Recovered/Resolved]
  - Enterococcal infection [Unknown]
  - Acinetobacter infection [Unknown]
  - Pulmonary tuberculosis [Unknown]
  - Pneumonia [Recovered/Resolved]
  - Pancreatic pseudocyst [Unknown]
  - Genitourinary tract infection [Unknown]
  - Tremor [Unknown]

NARRATIVE: CASE EVENT DATE: 2012
